FAERS Safety Report 5026766-8 (Version None)
Quarter: 2006Q2

REPORT INFORMATION
  Report Type: 
  Country: None (occurrence: None)
  Receive Date: 20060615
  Receipt Date: 20060606
  Transmission Date: 20061013
  Serious: Yes (Hospitalization)
  Sender: FDA-Public Use
  Company Number: CH-JNJFOC-20060601628

PATIENT
  Sex: Male

DRUGS (7)
  1. DURAGESIC-100 [Suspect]
     Indication: CANCER PAIN
     Route: 062
  2. TRAMADOL HCL [Suspect]
     Indication: CANCER PAIN
     Route: 048
  3. ACETAMINOPHEN [Concomitant]
     Route: 048
  4. BELOC-ZOK [Concomitant]
     Route: 048
  5. BELOC-ZOK [Concomitant]
     Route: 048
  6. ASPIRIN [Concomitant]
     Route: 048
  7. ENATEC [Concomitant]
     Route: 048

REACTIONS (2)
  - COMA [None]
  - CONFUSIONAL STATE [None]
